FAERS Safety Report 5088918-0 (Version None)
Quarter: 2006Q3

REPORT INFORMATION
  Report Type: 
  Country: None (occurrence: None)
  Receive Date: 20060824
  Receipt Date: 20060824
  Transmission Date: 20061208
  Serious: Yes (Hospitalization)
  Sender: FDA-Public Use
  Company Number: None

PATIENT
  Age: 63 Year
  Sex: Male
  Weight: 157.9 kg

DRUGS (3)
  1. SPIRONOLACTONE [Suspect]
     Indication: HYPERTENSION
     Dosage: 25MG QD PO
     Route: 048
  2. SPIRONOLACTONE [Suspect]
     Indication: OEDEMA PERIPHERAL
     Dosage: 25MG QD PO
     Route: 048
  3. FUROSEMIDE [Suspect]
     Indication: OEDEMA PERIPHERAL
     Dosage: 40MG BID PO  INCREASED X 14 DAYS
     Route: 048

REACTIONS (19)
  - BLOOD GLUCOSE INCREASED [None]
  - CHROMATURIA [None]
  - CONSTIPATION [None]
  - DEHYDRATION [None]
  - FACE INJURY [None]
  - FALL [None]
  - FEELING ABNORMAL [None]
  - HEART RATE INCREASED [None]
  - HYPOACUSIS [None]
  - HYPONATRAEMIA [None]
  - INCORRECT DOSE ADMINISTERED [None]
  - INTERNATIONAL NORMALISED RATIO DECREASED [None]
  - LOSS OF CONSCIOUSNESS [None]
  - OEDEMA PERIPHERAL [None]
  - PULMONARY HYPERTENSION [None]
  - SYNCOPE [None]
  - THIRST [None]
  - TRANSAMINASES INCREASED [None]
  - WEIGHT INCREASED [None]
